FAERS Safety Report 21368404 (Version 2)
Quarter: 2022Q4

REPORT INFORMATION
  Report Type: Spontaneous
  Country: ES (occurrence: ES)
  Receive Date: 20220923
  Receipt Date: 20221003
  Transmission Date: 20230112
  Serious: Yes (Hospitalization)
  Sender: FDA-Public Use
  Company Number: ES-MLMSERVICE-20220915-3794465-1

PATIENT
  Age: 38 Year
  Sex: Male
  Weight: 115 kg

DRUGS (14)
  1. DEXAMETHASONE [Suspect]
     Active Substance: DEXAMETHASONE
     Indication: COVID-19 pneumonia
     Dosage: STARTED ON DAY 7 SINCE ONSET OF SYMPTOMS (4 MG/ML)
     Route: 042
  2. DEXAMETHASONE [Suspect]
     Active Substance: DEXAMETHASONE
     Dosage: ON DAY 10 SINCE START OF SYMPTOMS
     Route: 042
  3. DEXAMETHASONE [Suspect]
     Active Substance: DEXAMETHASONE
     Dosage: FROM DAY 14 TO 18 OF START OF SYMPTOMS
     Route: 065
  4. DEXAMETHASONE [Suspect]
     Active Substance: DEXAMETHASONE
     Dosage: 4 MG ON FIRST DAY OF ADMISSION TO PSYCHIATRY UNIT AND 4 MG ON THE SECOND DAY AFTER ADMISSION
     Route: 065
  5. ENOXAPARIN [Concomitant]
     Active Substance: ENOXAPARIN
     Indication: COVID-19 pneumonia
     Route: 058
  6. ENOXAPARIN [Concomitant]
     Active Substance: ENOXAPARIN
     Route: 058
  7. OXYGEN [Concomitant]
     Active Substance: OXYGEN
     Indication: Oxygen therapy
     Dosage: ON DAY 10 FROM THE ONSET OF SYMPTOMS, OXYGEN THERAPY VIA VENTIMASK FACE MASK AT 50%
  8. OXYGEN [Concomitant]
     Active Substance: OXYGEN
     Dosage: ON DAY 11 SINCE START OF SYMPTOMS, NASAL CANNULA
     Route: 045
  9. DEXTROMETHORPHAN [Concomitant]
     Active Substance: DEXTROMETHORPHAN
     Indication: COVID-19 pneumonia
  10. BUDESONIDE\FORMOTEROL [Concomitant]
     Active Substance: BUDESONIDE\FORMOTEROL
     Indication: COVID-19 pneumonia
     Dosage: BUDESONIDE 160 MCG; FORMOTEROL 4.5 MCG
     Route: 055
  11. TOCILIZUMAB [Concomitant]
     Active Substance: TOCILIZUMAB
     Indication: COVID-19 pneumonia
     Dosage: ON DAY 8 FROM START OF SYMPTOM (200-MG/10-ML INJECTION)
     Route: 042
  12. TOCILIZUMAB [Concomitant]
     Active Substance: TOCILIZUMAB
     Dosage: ON DAY 10, SECOND 800MG BOLUS IV
     Route: 042
  13. LOSARTAN [Concomitant]
     Active Substance: LOSARTAN
     Indication: COVID-19 pneumonia
     Dosage: LOSARTAN 25 MG (IF BLOOD PRESSURE GREATER THAN 140/90 MM HG) (AS REQUIRED)
  14. HALOPERIDOL [Concomitant]
     Active Substance: HALOPERIDOL
     Indication: Product used for unknown indication
     Dosage: FROM DAY 18 TO 21

REACTIONS (2)
  - Neuropsychiatric symptoms [Recovered/Resolved]
  - Suicide attempt [Recovered/Resolved]
